FAERS Safety Report 20160905 (Version 1)
Quarter: 2021Q4

REPORT INFORMATION
  Report Type: Spontaneous
  Country: JP (occurrence: JP)
  Receive Date: 20211208
  Receipt Date: 20211208
  Transmission Date: 20220304
  Serious: Yes (Other)
  Sender: FDA-Public Use
  Company Number: JP-PFIZER INC-202101659398

PATIENT
  Age: 8 Decade
  Sex: Male

DRUGS (1)
  1. DOCETAXEL [Suspect]
     Active Substance: DOCETAXEL
     Indication: Extramammary Paget^s disease
     Dosage: UNK, MONTHLY

REACTIONS (5)
  - Septic shock [Unknown]
  - Cellulitis [Recovered/Resolved]
  - Psoriasis [Recovered/Resolved]
  - Disseminated intravascular coagulation [Recovered/Resolved]
  - Haemophagocytic lymphohistiocytosis [Recovered/Resolved]
